FAERS Safety Report 8434348-0 (Version None)
Quarter: 2012Q2

REPORT INFORMATION
  Report Type: 
  Country: None (occurrence: None)
  Receive Date: 20120613
  Receipt Date: 20120607
  Transmission Date: 20120825
  Serious: Yes (Hospitalization)
  Sender: FDA-Public Use
  Company Number: KR-MERCK-1206USA01294

PATIENT
  Age: 59 Year
  Sex: Male

DRUGS (2)
  1. ZIOPTAN [Suspect]
     Route: 047
     Dates: start: 20110727
  2. DORZOLAMIDE HYDROCHLORIDE [Concomitant]
     Route: 047
     Dates: start: 20110810

REACTIONS (1)
  - DRUG INEFFECTIVE [None]
